FAERS Safety Report 7438068-0 (Version None)
Quarter: 2011Q2

REPORT INFORMATION
  Report Type: 
  Country: None (occurrence: None)
  Receive Date: 20110426
  Receipt Date: 20110418
  Transmission Date: 20111010
  Serious: Yes (Other)
  Sender: FDA-Public Use
  Company Number: US-JNJFOC-20110408897

PATIENT

DRUGS (6)
  1. ANTICANCER AGENT [Suspect]
     Dosage: LEVEL 2
     Route: 042
  2. DOXORUBICIN HCL [Suspect]
     Dosage: LEVEL 2
     Route: 042
  3. ANTICANCER AGENT [Suspect]
     Dosage: LEVEL 1A
     Route: 042
  4. DOXORUBICIN HCL [Suspect]
     Indication: NEOPLASM
     Dosage: LEVEL 1
     Route: 042
  5. DOXORUBICIN HCL [Suspect]
     Dosage: LEVEL 1A
     Route: 042
  6. ANTICANCER AGENT [Suspect]
     Indication: NEOPLASM
     Dosage: LEVEL 1
     Route: 042

REACTIONS (1)
  - RENAL FAILURE [None]
